FAERS Safety Report 12799366 (Version 3)
Quarter: 2017Q1

REPORT INFORMATION
  Report Type: Spontaneous
  Country: IT (occurrence: IT)
  Receive Date: 20160930
  Receipt Date: 20170203
  Transmission Date: 20170428
  Serious: Yes (Disabling)
  Sender: FDA-Public Use
  Company Number: IT-JNJFOC-20160927756

PATIENT
  Age: 67 Year
  Sex: Female

DRUGS (2)
  1. INSULIN [Concomitant]
     Active Substance: INSULIN NOS
     Indication: HYPERGLYCAEMIA
     Route: 065
     Dates: start: 20160315
  2. VOKANAMET [Suspect]
     Active Substance: CANAGLIFLOZIN\METFORMIN HYDROCHLORIDE
     Indication: HYPERGLYCAEMIA
     Dosage: 150/1000 MG
     Route: 065
     Dates: start: 20160315, end: 20160705

REACTIONS (4)
  - Peripheral ischaemia [Unknown]
  - Acute coronary syndrome [Recovered/Resolved with Sequelae]
  - Gangrene [Recovered/Resolved with Sequelae]
  - Gangrene [Unknown]

NARRATIVE: CASE EVENT DATE: 20160701
